FAERS Safety Report 14835447 (Version 1)
Quarter: 2018Q2

REPORT INFORMATION
  Report Type: Spontaneous
  Country: FR (occurrence: FR)
  Receive Date: 20180502
  Receipt Date: 20180502
  Transmission Date: 20180711
  Serious: Yes (Other)
  Sender: FDA-Public Use
  Company Number: FR-TEVA-2018-FR-887548

PATIENT
  Age: 92 Year
  Sex: Female

DRUGS (2)
  1. VENLAFAXINE [Suspect]
     Active Substance: VENLAFAXINE HYDROCHLORIDE
     Indication: DEPRESSION
     Route: 048
  2. IZALGI 500 MG/25 MG, G?LULE [Suspect]
     Active Substance: ACETAMINOPHEN\OPIUM
     Indication: PAIN
     Route: 048

REACTIONS (1)
  - Gastrointestinal disorder [Recovered/Resolved]
